FAERS Safety Report 24701537 (Version 1)
Quarter: 2024Q4

REPORT INFORMATION
  Report Type: Report from Study
  Country: US (occurrence: US)
  Receive Date: 20241205
  Receipt Date: 20241205
  Transmission Date: 20250115
  Serious: Yes (Other)
  Sender: ALEXION PHARMACEUTICALS
  Company Number: US-AstraZeneca-202411USA026035US

PATIENT

DRUGS (16)
  1. OLAPARIB [Suspect]
     Active Substance: OLAPARIB
     Indication: Breast cancer metastatic
     Dosage: 150 MILLIGRAM, BID
  2. OLAPARIB [Suspect]
     Active Substance: OLAPARIB
     Dosage: 150 MILLIGRAM, BID
  3. OLAPARIB [Suspect]
     Active Substance: OLAPARIB
     Dosage: 150 MILLIGRAM, BID
  4. OLAPARIB [Suspect]
     Active Substance: OLAPARIB
     Dosage: 150 MILLIGRAM, BID
  5. OLAPARIB [Suspect]
     Active Substance: OLAPARIB
     Dosage: 300 MILLIGRAM
  6. OLAPARIB [Suspect]
     Active Substance: OLAPARIB
     Dosage: 300 MILLIGRAM
  7. OLAPARIB [Suspect]
     Active Substance: OLAPARIB
     Dosage: 300 MILLIGRAM
  8. OLAPARIB [Suspect]
     Active Substance: OLAPARIB
     Dosage: 300 MILLIGRAM
  9. OLAPARIB [Suspect]
     Active Substance: OLAPARIB
     Dosage: 150 MG IN MORNING, 300 MG (2-150 MG TABLETS) IN EVENING
  10. OLAPARIB [Suspect]
     Active Substance: OLAPARIB
     Dosage: 150 MG IN MORNING, 300 MG (2-150 MG TABLETS) IN EVENING
  11. OLAPARIB [Suspect]
     Active Substance: OLAPARIB
     Dosage: 150 MG IN MORNING, 300 MG (2-150 MG TABLETS) IN EVENING
  12. OLAPARIB [Suspect]
     Active Substance: OLAPARIB
     Dosage: 150 MG IN MORNING, 300 MG (2-150 MG TABLETS) IN EVENING
  13. OLAPARIB [Suspect]
     Active Substance: OLAPARIB
     Dosage: 250 MILLIGRAM, BID
  14. OLAPARIB [Suspect]
     Active Substance: OLAPARIB
     Dosage: 250 MILLIGRAM, BID
  15. OLAPARIB [Suspect]
     Active Substance: OLAPARIB
     Dosage: 250 MILLIGRAM, BID
  16. OLAPARIB [Suspect]
     Active Substance: OLAPARIB
     Dosage: 250 MILLIGRAM, BID

REACTIONS (7)
  - Cardiac failure [Unknown]
  - Neoplasm malignant [Unknown]
  - Bone cancer [Unknown]
  - Respiratory tract infection [Recovered/Resolved]
  - Cough [Not Recovered/Not Resolved]
  - Anaemia [Recovered/Resolved]
  - Red blood cell transfusion [Unknown]
